FAERS Safety Report 22648111 (Version 3)
Quarter: 2023Q4

REPORT INFORMATION
  Report Type: Spontaneous
  Country: RO (occurrence: RO)
  Receive Date: 20230628
  Receipt Date: 20231212
  Transmission Date: 20240109
  Serious: Yes (Other)
  Sender: FDA-Public Use
  Company Number: RO-ROCHE-3377054

PATIENT
  Age: 43 Year
  Sex: Female
  Weight: 68 kg

DRUGS (16)
  1. DOXORUBICIN HYDROCHLORIDE [Suspect]
     Active Substance: DOXORUBICIN HYDROCHLORIDE
     Indication: Diffuse large B-cell lymphoma
     Route: 065
     Dates: start: 202212, end: 202302
  2. POLATUZUMAB VEDOTIN [Suspect]
     Active Substance: POLATUZUMAB VEDOTIN
     Indication: Diffuse large B-cell lymphoma
     Route: 065
     Dates: start: 202303, end: 202305
  3. PREDNISONE [Suspect]
     Active Substance: PREDNISONE
     Indication: Diffuse large B-cell lymphoma
     Route: 065
     Dates: start: 202212, end: 202302
  4. VINCRISTINE [Suspect]
     Active Substance: VINCRISTINE
     Indication: Diffuse large B-cell lymphoma
     Route: 065
     Dates: start: 202212, end: 202302
  5. BENDAMUSTINE [Suspect]
     Active Substance: BENDAMUSTINE
     Indication: Diffuse large B-cell lymphoma
     Route: 065
     Dates: start: 202303, end: 202305
  6. CYTARABINE [Suspect]
     Active Substance: CYTARABINE
     Indication: Diffuse large B-cell lymphoma
     Route: 065
     Dates: start: 202303
  7. CYCLOPHOSPHAMIDE [Suspect]
     Active Substance: CYCLOPHOSPHAMIDE
     Indication: Diffuse large B-cell lymphoma
     Route: 065
     Dates: start: 202212, end: 202302
  8. MABTHERA [Suspect]
     Active Substance: RITUXIMAB
     Indication: Diffuse large B-cell lymphoma
     Route: 065
     Dates: start: 202212, end: 202302
  9. MABTHERA [Suspect]
     Active Substance: RITUXIMAB
     Route: 065
     Dates: start: 202302
  10. MABTHERA [Suspect]
     Active Substance: RITUXIMAB
     Route: 065
     Dates: start: 202303
  11. MABTHERA [Suspect]
     Active Substance: RITUXIMAB
     Route: 065
     Dates: start: 202303, end: 202305
  12. DEXAMETHASONE [Suspect]
     Active Substance: DEXAMETHASONE
     Indication: Diffuse large B-cell lymphoma
     Route: 065
     Dates: start: 202303
  13. ETOPOSIDE [Suspect]
     Active Substance: ETOPOSIDE
     Indication: Diffuse large B-cell lymphoma
     Route: 065
     Dates: start: 202302
  14. IFOSFAMIDE [Suspect]
     Active Substance: IFOSFAMIDE
     Indication: Diffuse large B-cell lymphoma
     Route: 065
     Dates: start: 202302
  15. CISPLATIN [Suspect]
     Active Substance: CISPLATIN
     Indication: Diffuse large B-cell lymphoma
     Route: 065
     Dates: start: 202303
  16. CARBOPLATIN [Suspect]
     Active Substance: CARBOPLATIN
     Indication: Diffuse large B-cell lymphoma
     Route: 065
     Dates: start: 202302

REACTIONS (2)
  - Disease progression [Unknown]
  - Off label use [Unknown]
